FAERS Safety Report 21133984 (Version 1)
Quarter: 2022Q3

REPORT INFORMATION
  Report Type: Spontaneous
  Country: US (occurrence: US)
  Receive Date: 20220726
  Receipt Date: 20220726
  Transmission Date: 20221026
  Serious: No
  Sender: FDA-Public Use
  Company Number: US-OYSTER POINT PHARMA, INC.-2022OYS00705

PATIENT
  Age: 82 Year
  Sex: Female

DRUGS (3)
  1. TYRVAYA [Suspect]
     Active Substance: VARENICLINE TARTRATE
     Indication: Dry eye
     Dosage: 1 SPRAY IN EACH NOSTRIL, 1X/DAY (SAMPLES)
     Route: 045
     Dates: start: 20220601, end: 20220630
  2. TYRVAYA [Suspect]
     Active Substance: VARENICLINE TARTRATE
     Dosage: 1 SPRAY IN EACH NOSTRIL, 1X/DAY (FULL PRESCRIPTION BOTTLE)
     Dates: start: 20220701
  3. UNSPECIFIED INGREDIENT [Concomitant]
     Active Substance: UNSPECIFIED INGREDIENT

REACTIONS (3)
  - Drug ineffective [Not Recovered/Not Resolved]
  - Sneezing [Not Recovered/Not Resolved]
  - Off label use [Not Recovered/Not Resolved]

NARRATIVE: CASE EVENT DATE: 20220601
